FAERS Safety Report 22390831 (Version 5)
Quarter: 2024Q3

REPORT INFORMATION
  Report Type: Report from Study
  Country: GB (occurrence: GB)
  Receive Date: 20230531
  Receipt Date: 20240820
  Transmission Date: 20241016
  Serious: Yes (Hospitalization, Other)
  Sender: ABBVIE
  Company Number: GB-ABBVIE-4268536

PATIENT
  Age: 33 Year
  Sex: Female

DRUGS (13)
  1. HUMIRA [Suspect]
     Active Substance: ADALIMUMAB
     Indication: Juvenile idiopathic arthritis
     Dosage: FORM STRENGTH: 40 MG
     Route: 058
     Dates: start: 2016, end: 202212
  2. HUMIRA [Suspect]
     Active Substance: ADALIMUMAB
     Dosage: FORM STRENGTH: 40 MG?LAST ADMIN DATE: 2024
     Route: 058
     Dates: start: 2024
  3. HUMIRA [Suspect]
     Active Substance: ADALIMUMAB
     Dosage: FORM STRENGTH: 40 MG
     Route: 058
     Dates: start: 2024, end: 202403
  4. HUMIRA [Suspect]
     Active Substance: ADALIMUMAB
     Dosage: FORM STRENGTH: 40 MG
     Route: 058
     Dates: start: 2024
  5. COCODAMOL [Concomitant]
     Active Substance: ACETAMINOPHEN\CODEINE PHOSPHATE
     Indication: Product used for unknown indication
     Dosage: 30/500
     Route: 048
  6. ALBUTEROL [Concomitant]
     Active Substance: ALBUTEROL
     Indication: Product used for unknown indication
     Route: 055
  7. HYDROXYUREA [Concomitant]
     Active Substance: HYDROXYUREA
     Indication: Product used for unknown indication
     Route: 048
  8. BECLOMETHASONE\FORMOTEROL [Concomitant]
     Active Substance: BECLOMETHASONE\FORMOTEROL
     Indication: Product used for unknown indication
     Route: 055
  9. MONTELUKAST [Concomitant]
     Active Substance: MONTELUKAST SODIUM
     Indication: Product used for unknown indication
     Route: 048
  10. VITAMIN B12 [Concomitant]
     Active Substance: CYANOCOBALAMIN
     Indication: Product used for unknown indication
  11. OMEPRAZOLE [Concomitant]
     Active Substance: OMEPRAZOLE
     Indication: Product used for unknown indication
  12. IMODIUM [Concomitant]
     Active Substance: LOPERAMIDE HYDROCHLORIDE
     Indication: Product used for unknown indication
  13. PREDNISONE [Suspect]
     Active Substance: PREDNISONE
     Indication: Product used for unknown indication
     Route: 065

REACTIONS (40)
  - Stoma obstruction [Unknown]
  - Influenza [Recovered/Resolved]
  - Infection [Not Recovered/Not Resolved]
  - Unevaluable event [Unknown]
  - Haemophobia [Unknown]
  - Pyrexia [Unknown]
  - Crohn^s disease [Unknown]
  - Uveitis [Unknown]
  - Autism spectrum disorder [Unknown]
  - Movement disorder [Unknown]
  - White blood cell count increased [Unknown]
  - Juvenile idiopathic arthritis [Unknown]
  - Fat tissue increased [Unknown]
  - Stoma site inflammation [Unknown]
  - Hepatic steatosis [Unknown]
  - Loss of consciousness [Unknown]
  - Hernia obstructive [Unknown]
  - Intestinal dilatation [Unknown]
  - Atelectasis [Unknown]
  - Inflammatory marker increased [Unknown]
  - Bone pain [Unknown]
  - Stress [Unknown]
  - Stoma site oedema [Unknown]
  - Lymphadenopathy [Unknown]
  - Fear of injection [Unknown]
  - Stoma site haemorrhage [Unknown]
  - Intra-abdominal fluid collection [Unknown]
  - Diabetes mellitus [Unknown]
  - Flatulence [Unknown]
  - Seroma [Unknown]
  - Arthropathy [Unknown]
  - Drug resistance [Unknown]
  - Haematoma [Unknown]
  - Pain [Unknown]
  - Stoma creation [Recovered/Resolved]
  - Mobility decreased [Unknown]
  - Arthritis [Unknown]
  - Arthralgia [Unknown]
  - Fat tissue increased [Unknown]
  - Pain in extremity [Unknown]

NARRATIVE: CASE EVENT DATE: 20221201
